FAERS Safety Report 12069203 (Version 1)
Quarter: 2016Q1

REPORT INFORMATION
  Report Type: Spontaneous
  Country: US (occurrence: US)
  Receive Date: 20160211
  Receipt Date: 20160211
  Transmission Date: 20160526
  Serious: Yes (Hospitalization, Congenital Anomaly, Other)
  Sender: FDA-Public Use
  Company Number: US-APOTEX-2016AP006479

PATIENT
  Age: 0 Year
  Sex: Female
  Weight: 4 kg

DRUGS (4)
  1. TYLENOL [Concomitant]
     Active Substance: ACETAMINOPHEN
     Indication: ABDOMINAL PAIN
     Dosage: UNK
     Route: 064
     Dates: start: 200208
  2. PAXIL [Suspect]
     Active Substance: PAROXETINE HYDROCHLORIDE
     Indication: DEPRESSION
     Dosage: 20 MG, QD
     Route: 064
     Dates: start: 2002, end: 2003
  3. PRENATAL VITAMINS                  /07426201/ [Concomitant]
     Active Substance: ASCORBIC ACID\BIOTIN\MINERALS\NIACIN\RETINOL\TOCOPHEROL\VITAMIN B\VITAMIN D
     Indication: PRODUCT USED FOR UNKNOWN INDICATION
     Route: 064
  4. TYLENOL [Concomitant]
     Active Substance: ACETAMINOPHEN
     Indication: TEETHING
     Dosage: UNK

REACTIONS (22)
  - Failure to thrive [Unknown]
  - Congenital aortic valve stenosis [Unknown]
  - Ventricular dysfunction [Unknown]
  - Ventricular hypertrophy [Unknown]
  - Mitral valve hypoplasia [Unknown]
  - Urinary tract infection [Unknown]
  - Right ventricle outflow tract obstruction [Unknown]
  - Tachycardia [Unknown]
  - Anaemia [Unknown]
  - Heart disease congenital [Unknown]
  - Cardiac failure congestive [Unknown]
  - Vesicoureteric reflux [Unknown]
  - Ventricular septal defect [Unknown]
  - Endocarditis enterococcal [Recovered/Resolved]
  - Poor feeding infant [Unknown]
  - Congenital pulmonary hypertension [Unknown]
  - Pulmonary valve incompetence [Unknown]
  - Congenital aortic valve incompetence [Unknown]
  - Poor weight gain neonatal [Unknown]
  - Neonatal respiratory distress syndrome [Unknown]
  - Atrial septal defect [Unknown]
  - Foetal exposure during pregnancy [Unknown]

NARRATIVE: CASE EVENT DATE: 2003
